FAERS Safety Report 6235513-3 (Version None)
Quarter: 2009Q2

REPORT INFORMATION
  Report Type: 
  Country: None (occurrence: None)
  Receive Date: 20090618
  Receipt Date: 20081014
  Transmission Date: 20091009
  Serious: No
  Sender: FDA-Public Use
  Company Number: US-ASTRAZENECA-2008UW13364

PATIENT
  Age: 56 Year
  Sex: Male
  Weight: 72.6 kg

DRUGS (4)
  1. RHINOCORT [Suspect]
     Indication: MULTIPLE ALLERGIES
     Dosage: 32 UG - ONE SPRAY EACH NOSTRIL
     Route: 045
  2. BENADRYL [Concomitant]
  3. HYDROCODONE BITARTRATE [Concomitant]
  4. OXYCODONE HCL [Concomitant]

REACTIONS (3)
  - DRY SKIN [None]
  - NASAL DISCOMFORT [None]
  - THERAPEUTIC RESPONSE UNEXPECTED [None]
